FAERS Safety Report 6369150-7 (Version None)
Quarter: 2009Q3

REPORT INFORMATION
  Report Type: 
  Country: None (occurrence: None)
  Receive Date: 20090918
  Receipt Date: 20090918
  Transmission Date: 20100115
  Serious: Yes (Other)
  Sender: FDA-Public Use
  Company Number: None

PATIENT
  Age: 87 Year
  Sex: Female
  Weight: 54.1 kg

DRUGS (11)
  1. ERGOCALCIFEROL (VITAMIN D2) 50,000 UNITS BARR [Suspect]
     Indication: VITAMIN D DEFICIENCY
     Dosage: 50,000 UNITS THREE TIMES/WEEK ORAL
     Route: 048
     Dates: start: 20070420, end: 20081201
  2. CHOLECALCIFEROL (VITAMIN D3) 50,000 UNITS BIOTECH PHARMA [Suspect]
     Indication: VITAMIN D DEFICIENCY
     Dosage: 50,000 UNITS THREE TIMES/WEEK ORAL
     Route: 048
     Dates: start: 20081218, end: 20090612
  3. ACETAMINOPHEN [Concomitant]
  4. AMLODIPINE [Concomitant]
  5. CETAPHIL LOTION [Concomitant]
  6. VALSARTAN [Concomitant]
  7. GEMFIBROZIL [Concomitant]
  8. LACTAID [Concomitant]
  9. METOPROLOL SUCCINATE [Concomitant]
  10. MIRTAZAPINE [Concomitant]
  11. SYSTANE [Concomitant]

REACTIONS (2)
  - DRUG DISPENSING ERROR [None]
  - VITAMIN D INCREASED [None]
